FAERS Safety Report 7352749-9 (Version None)
Quarter: 2011Q1

REPORT INFORMATION
  Report Type: 
  Country: None (occurrence: None)
  Receive Date: 20110315
  Receipt Date: 20110310
  Transmission Date: 20110831
  Serious: No
  Sender: FDA-Public Use
  Company Number: CA-ELI_LILLY_AND_COMPANY-CA201012005245

PATIENT
  Sex: Female
  Weight: 82.993 kg

DRUGS (18)
  1. EFFEXOR [Concomitant]
     Dosage: 75 MG, UNK
     Dates: end: 20100901
  2. DIOVAN [Concomitant]
  3. MIRAPEX [Concomitant]
  4. COMTAN [Concomitant]
  5. ZOPICLONE [Concomitant]
  6. SINEMET [Concomitant]
  7. ELTROXIN [Concomitant]
  8. DILAUDID [Concomitant]
     Dosage: UNK, AS NEEDED
  9. INSULIN [Concomitant]
  10. CYMBALTA [Suspect]
     Indication: DIABETIC NEUROPATHY
     Dosage: 60 MG, DAILY (1/D)
     Route: 048
     Dates: start: 20100601, end: 20101220
  11. CLONAZEPAM [Concomitant]
  12. ASPIRIN [Concomitant]
     Dosage: 81 MG, UNK
  13. EFFEXOR [Concomitant]
     Dates: start: 20101201
  14. QUESTRAN [Concomitant]
  15. METFORMIN [Concomitant]
  16. HYDROMORPHONE HCL [Concomitant]
  17. VITAMIN D [Concomitant]
  18. VITALUX [Concomitant]

REACTIONS (9)
  - YELLOW SKIN [None]
  - CONTUSION [None]
  - URINE COLOUR ABNORMAL [None]
  - HYPERHIDROSIS [None]
  - PRURITUS [None]
  - SOMNOLENCE [None]
  - PAIN [None]
  - URINARY RETENTION [None]
  - VISION BLURRED [None]
